FAERS Safety Report 23677161 (Version 7)
Quarter: 2024Q3

REPORT INFORMATION
  Report Type: Spontaneous
  Country: US (occurrence: US)
  Receive Date: 20240327
  Receipt Date: 20240926
  Transmission Date: 20241017
  Serious: No
  Sender: PFIZER
  Company Number: US-PFIZER INC-202400068548

PATIENT
  Age: 13 Year
  Sex: Male
  Weight: 68.027 kg

DRUGS (2)
  1. GENOTROPIN [Suspect]
     Active Substance: SOMATROPIN
     Indication: Growth hormone deficiency
     Dosage: 1 MG, DAILY
  2. GENOTROPIN [Suspect]
     Active Substance: SOMATROPIN
     Dosage: 2.2 AT NIGHT BEFORE BED
     Dates: start: 202110, end: 20240317

REACTIONS (5)
  - Device information output issue [Unknown]
  - Drug dose omission by device [Unknown]
  - Expired device used [Unknown]
  - Device use error [Unknown]
  - Device breakage [Unknown]

NARRATIVE: CASE EVENT DATE: 20240318
